FAERS Safety Report 8450696-2 (Version None)
Quarter: 2012Q2

REPORT INFORMATION
  Report Type: 
  Country: None (occurrence: None)
  Receive Date: 20120613
  Receipt Date: 20120605
  Transmission Date: 20120825
  Serious: Yes (Other)
  Sender: FDA-Public Use
  Company Number: AUR-APL-2012-01908

PATIENT
  Age: 65 Year
  Sex: Female
  Weight: 61.2356 kg

DRUGS (5)
  1. CIMZIA [Concomitant]
  2. LEFLUNOMIDE [Concomitant]
  3. ALENDRONATE SODIUM [Concomitant]
  4. DICLOFENAC SODIUM [Concomitant]
  5. GABAPENTIN [Suspect]
     Indication: SPINAL PAIN
     Dosage: (3 IN 1 D), ORAL, 9 DOSAGE FORMS (3 DOSAGE FORMS, 3 IN 1 D), ORAL
     Route: 048
     Dates: start: 20120415

REACTIONS (3)
  - URTICARIA [None]
  - ERYTHEMA [None]
  - LIP SWELLING [None]
